FAERS Safety Report 7539262-0 (Version None)
Quarter: 2011Q2

REPORT INFORMATION
  Report Type: 
  Country: None (occurrence: None)
  Receive Date: 20110610
  Receipt Date: 20110531
  Transmission Date: 20111010
  Serious: Yes (Other)
  Sender: FDA-Public Use
  Company Number: JP-MILLENNIUM PHARMACEUTICALS, INC.-2011-02282

PATIENT

DRUGS (1)
  1. VELCADE [Suspect]
     Indication: MULTIPLE MYELOMA
     Dosage: UNK
     Route: 042

REACTIONS (4)
  - PSEUDOMEMBRANOUS COLITIS [None]
  - ASPERGILLOSIS [None]
  - HERPES ZOSTER [None]
  - CLOSTRIDIUM DIFFICILE COLITIS [None]
